FAERS Safety Report 22526502 (Version 1)
Quarter: 2023Q2

REPORT INFORMATION
  Report Type: Spontaneous
  Country: US (occurrence: None)
  Receive Date: 20230605
  Receipt Date: 20230605
  Transmission Date: 20230722
  Serious: Yes (Hospitalization)
  Sender: FDA-Public Use
  Company Number: None

PATIENT
  Sex: Female

DRUGS (7)
  1. NORDITROPIN [Suspect]
     Active Substance: SOMATROPIN
     Indication: Hypopituitarism
     Dosage: OTHER QUANTITY : 15 MG/1.5ML ;?FREQUENCY : AS DIRECTED;?
     Route: 058
     Dates: start: 20230418
  2. NORDITROPIN [Suspect]
     Active Substance: SOMATROPIN
     Dosage: FREQUENCY : AS DIRECTED;?
     Route: 058
  3. GADOLINIUM DERIVATIVES [Concomitant]
  4. HYDROCODONE [Concomitant]
  5. IODIDES [Concomitant]
  6. MORPHINE [Concomitant]
  7. VICODIN [Concomitant]

REACTIONS (2)
  - Limb injury [None]
  - Therapy interrupted [None]
